FAERS Safety Report 9862085 (Version 1)
Quarter: 2014Q1

REPORT INFORMATION
  Report Type: Spontaneous
  Country: US (occurrence: US)
  Receive Date: 20140203
  Receipt Date: 20140203
  Transmission Date: 20141002
  Serious: No
  Sender: FDA-Public Use
  Company Number: US-B.I. PHARMACEUTICALS,INC./RIDGEFIELD-2014-BI-03304BP

PATIENT
  Age: 74 Year
  Sex: Female
  Weight: 71 kg

DRUGS (7)
  1. COMBIVENT [Suspect]
     Indication: CHRONIC OBSTRUCTIVE PULMONARY DISEASE
     Dosage: DOSE PER APPLICATION: 20 MCG / 100 MCG; DAILY DOSE: 80MCG/400MCG
     Route: 055
     Dates: start: 201308
  2. HYDROCODONE [Concomitant]
     Indication: PAIN
     Dosage: STRENGTH: 5MG/325MG
     Route: 048
     Dates: start: 201211
  3. OMEPRAZOLE [Concomitant]
     Indication: DYSPEPSIA
     Dosage: 40 MG
     Route: 048
  4. METOPROLOL [Concomitant]
     Indication: CHEST PAIN
     Dosage: 75 MG
     Route: 048
     Dates: start: 1999
  5. LORAZEPAM [Concomitant]
     Indication: ANXIETY
     Dosage: 1.5 MG
     Route: 048
     Dates: start: 1998
  6. ORPHENADRINE [Concomitant]
     Dosage: 200 MG
     Route: 048
     Dates: start: 201211
  7. LEVOXYL [Concomitant]
     Indication: HYPOTHYROIDISM
     Dosage: 100 MCG
     Route: 048
     Dates: start: 2008

REACTIONS (3)
  - Pruritus [Not Recovered/Not Resolved]
  - Pruritus [Not Recovered/Not Resolved]
  - Dry skin [Not Recovered/Not Resolved]
